FAERS Safety Report 17667020 (Version 1)
Quarter: 2020Q2

REPORT INFORMATION
  Report Type: Spontaneous
  Country: US (occurrence: US)
  Receive Date: 20200414
  Receipt Date: 20200414
  Transmission Date: 20200713
  Serious: Yes (Other)
  Sender: FDA-Public Use
  Company Number: US-ASTELLAS-2019US033269

PATIENT
  Sex: Male

DRUGS (3)
  1. PROGRAF [Suspect]
     Active Substance: TACROLIMUS
     Route: 048
     Dates: end: 2017
  2. PROGRAF [Suspect]
     Active Substance: TACROLIMUS
     Indication: LIVER TRANSPLANT
     Route: 048
     Dates: start: 20150915
  3. PROGRAF [Suspect]
     Active Substance: TACROLIMUS
     Dosage: FLUCTUATING DOSE AFTER TRANSPLANT SEVERAL TIMES, UNKNOWN FREQ.
     Route: 048

REACTIONS (2)
  - Tremor [Recovered/Resolved]
  - Renal impairment [Not Recovered/Not Resolved]
